FAERS Safety Report 14516737 (Version 3)
Quarter: 2018Q1

REPORT INFORMATION
  Report Type: Spontaneous
  Country: US (occurrence: US)
  Receive Date: 20180212
  Receipt Date: 20180221
  Transmission Date: 20180509
  Serious: Yes (Other)
  Sender: FDA-Public Use
  Company Number: US-AMGEN-USASP2018018889

PATIENT
  Age: 64 Year
  Sex: Female
  Weight: 67.12 kg

DRUGS (10)
  1. RITUXAN [Suspect]
     Active Substance: RITUXIMAB
     Indication: PRODUCT USED FOR UNKNOWN INDICATION
     Dosage: UNK
     Route: 065
  2. HUMIRA [Suspect]
     Active Substance: ADALIMUMAB
     Indication: PRODUCT USED FOR UNKNOWN INDICATION
     Dosage: UNK
     Route: 065
  3. NAPROXEN SODIUM. [Concomitant]
     Active Substance: NAPROXEN SODIUM
     Dosage: 220 MG, Q12H AS NEEDED
     Route: 048
     Dates: start: 20140311
  4. ENBREL [Suspect]
     Active Substance: ETANERCEPT
     Indication: RHEUMATOID ARTHRITIS
     Dosage: UNK
     Route: 065
  5. METOPROLOL SUCCINATE. [Concomitant]
     Active Substance: METOPROLOL SUCCINATE
     Dosage: 25 MG, QD
     Route: 048
     Dates: start: 20140716
  6. TYLENOL EXTRA STRENGTH [Concomitant]
     Active Substance: ACETAMINOPHEN
     Dosage: 1000 MG (500 MG X2 TABLETS), Q6H AS NEEDED
     Route: 048
     Dates: start: 20140311
  7. CLARITIN [Concomitant]
     Active Substance: LORATADINE
     Dosage: 10 MG, QD
     Route: 048
     Dates: start: 20171103
  8. XELJANZ [Concomitant]
     Active Substance: TOFACITINIB CITRATE
     Indication: RHEUMATOID ARTHRITIS
     Dosage: 5 MG, BID
     Route: 048
     Dates: start: 20170112
  9. PREDNISONE. [Concomitant]
     Active Substance: PREDNISONE
     Dosage: 5 MG, QD
     Route: 048
     Dates: start: 20170306, end: 20171103
  10. PREDNISONE. [Concomitant]
     Active Substance: PREDNISONE
     Dosage: 10 MG (5 MG X 2 TABLETS), QD
     Route: 048
     Dates: start: 20171103

REACTIONS (10)
  - Snoring [Unknown]
  - Arthralgia [Unknown]
  - Fall [Unknown]
  - Sinus disorder [Unknown]
  - Lower limb fracture [Unknown]
  - Headache [Unknown]
  - Treatment failure [Unknown]
  - Insomnia [Unknown]
  - Oedema due to cardiac disease [Unknown]
  - Joint swelling [Unknown]

NARRATIVE: CASE EVENT DATE: 20170615
